FAERS Safety Report 5526395-3 (Version None)
Quarter: 2007Q4

REPORT INFORMATION
  Report Type: 
  Country: None (occurrence: None)
  Receive Date: 20071127
  Receipt Date: 20071120
  Transmission Date: 20080405
  Serious: Yes (Death, Other)
  Sender: FDA-Public Use
  Company Number: JP-AVENTIS-200712595JP

PATIENT
  Age: 71 Year
  Sex: Male
  Weight: 51 kg

DRUGS (12)
  1. TAXOTERE [Suspect]
     Indication: LUNG ADENOCARCINOMA RECURRENT
     Route: 041
     Dates: start: 20070531, end: 20070531
  2. TS-1 [Suspect]
     Indication: LUNG ADENOCARCINOMA RECURRENT
     Route: 048
     Dates: start: 20070531, end: 20070613
  3. ALOSENN                            /00476901/ [Suspect]
     Indication: CONSTIPATION
     Route: 048
     Dates: end: 20070511
  4. OXYCONTIN [Concomitant]
     Indication: CANCER PAIN
     Route: 048
     Dates: end: 20070624
  5. NAUZELIN [Concomitant]
     Indication: GASTROENTERITIS
     Route: 048
     Dates: end: 20070624
  6. DEPAS [Concomitant]
     Indication: ANXIETY DISORDER
     Route: 048
     Dates: end: 20070622
  7. METHYCOBAL                         /00056201/ [Concomitant]
     Indication: NEUROPATHY PERIPHERAL
     Route: 048
     Dates: end: 20070622
  8. RIVOTRIL [Concomitant]
     Indication: INSOMNIA
     Route: 048
     Dates: end: 20070622
  9. LENDORMIN [Concomitant]
     Indication: INSOMNIA
     Route: 048
     Dates: end: 20070622
  10. TAKEPRON [Concomitant]
     Indication: GASTROOESOPHAGEAL REFLUX DISEASE
     Route: 048
     Dates: end: 20070622
  11. KYTRIL                             /01178101/ [Concomitant]
     Indication: PREMEDICATION
     Route: 051
  12. DECADRON [Concomitant]
     Indication: PREMEDICATION

REACTIONS (8)
  - DEHYDRATION [None]
  - DIARRHOEA [None]
  - FEBRILE NEUTROPENIA [None]
  - HYPOVOLAEMIC SHOCK [None]
  - LUNG NEOPLASM MALIGNANT [None]
  - NEUTROPHIL COUNT DECREASED [None]
  - RENAL FAILURE [None]
  - STOMATITIS [None]
